FAERS Safety Report 7049035-3 (Version None)
Quarter: 2010Q4

REPORT INFORMATION
  Report Type: 
  Country: None (occurrence: None)
  Receive Date: 20101018
  Receipt Date: 20101013
  Transmission Date: 20110411
  Serious: Yes (Death, Hospitalization, Other)
  Sender: FDA-Public Use
  Company Number: PHHY2010JP26726

PATIENT
  Sex: Female
  Weight: 49 kg

DRUGS (3)
  1. ZOMETA [Suspect]
     Indication: METASTASES TO BONE
     Dosage: 4 MG
     Route: 042
     Dates: start: 20081104, end: 20090609
  2. HERCEPTIN [Concomitant]
     Dosage: UNK
     Route: 042
     Dates: start: 20080513, end: 20090623
  3. NAVELBINE [Concomitant]
     Dosage: UNK
     Route: 042
     Dates: start: 20090707, end: 20091224

REACTIONS (21)
  - ALANINE AMINOTRANSFERASE INCREASED [None]
  - ASPARTATE AMINOTRANSFERASE INCREASED [None]
  - BLOOD ALBUMIN DECREASED [None]
  - BLOOD ALKALINE PHOSPHATASE INCREASED [None]
  - BLOOD CREATININE DECREASED [None]
  - BLOOD LACTATE DEHYDROGENASE INCREASED [None]
  - BONE DISORDER [None]
  - GAMMA-GLUTAMYLTRANSFERASE INCREASED [None]
  - HAEMATOCRIT DECREASED [None]
  - HAEMOGLOBIN DECREASED [None]
  - HEPATIC FAILURE [None]
  - JAUNDICE [None]
  - MALIGNANT NEOPLASM PROGRESSION [None]
  - ORAL CAVITY FISTULA [None]
  - ORAL TORUS [None]
  - OSTEONECROSIS OF JAW [None]
  - PROTEIN TOTAL DECREASED [None]
  - RED BLOOD CELL COUNT DECREASED [None]
  - SEQUESTRECTOMY [None]
  - STOMATITIS [None]
  - WHITE BLOOD CELL COUNT DECREASED [None]
